FAERS Safety Report 5154910-0 (Version None)
Quarter: 2006Q4

REPORT INFORMATION
  Report Type: 
  Country: None (occurrence: None)
  Receive Date: 20061121
  Receipt Date: 20061108
  Transmission Date: 20070319
  Serious: Yes (Death, Hospitalization)
  Sender: FDA-Public Use
  Company Number: 2006PK02292

PATIENT
  Age: 69 Year
  Sex: Female

DRUGS (17)
  1. BELOC ZOK [Interacting]
     Route: 048
     Dates: start: 20051026
  2. ARICEPT [Interacting]
     Route: 048
     Dates: start: 20051115
  3. GLIANIMON [Suspect]
     Route: 048
     Dates: start: 20050919, end: 20051116
  4. GLIANIMON [Suspect]
     Route: 048
     Dates: start: 20051117, end: 20051117
  5. GLIANIMON [Suspect]
     Route: 048
     Dates: start: 20051118, end: 20051120
  6. GLIANIMON [Suspect]
     Route: 048
     Dates: start: 20051121, end: 20051121
  7. GLIANIMON [Suspect]
     Route: 048
     Dates: start: 20051122, end: 20051122
  8. GLIANIMON [Suspect]
     Route: 048
     Dates: start: 20051123, end: 20051123
  9. GLIANIMON [Suspect]
     Route: 048
     Dates: start: 20051124
  10. SEROQUEL [Suspect]
     Route: 048
     Dates: start: 20050501
  11. LORAZEPAM [Suspect]
     Route: 048
     Dates: start: 20050801
  12. LAMOTRIGINE [Suspect]
     Dates: start: 20050801, end: 20050901
  13. FAMCICLOVIR [Suspect]
     Dates: start: 20050823, end: 20060829
  14. LEVOTHYROXINE SODIUM [Concomitant]
     Route: 048
  15. CLEXANE [Concomitant]
     Indication: IMMOBILE
     Route: 058
     Dates: start: 20051027
  16. LEVODOPA [Concomitant]
     Dates: start: 20050501
  17. PRAMIPEXOL [Concomitant]
     Dosage: LONG TERM MEDICATION

REACTIONS (3)
  - DRUG INTERACTION POTENTIATION [None]
  - ERYTHEMA MULTIFORME [None]
  - SUDDEN CARDIAC DEATH [None]
